FAERS Safety Report 21458327 (Version 1)
Quarter: 2022Q4

REPORT INFORMATION
  Report Type: Spontaneous
  Country: PT (occurrence: PT)
  Receive Date: 20221014
  Receipt Date: 20221014
  Transmission Date: 20230112
  Serious: Yes (Death, Other)
  Sender: FDA-Public Use
  Company Number: PT-BoehringerIngelheim-2022-BI-196863

PATIENT
  Age: 53 Year
  Sex: Female

DRUGS (4)
  1. NINTEDANIB [Suspect]
     Active Substance: NINTEDANIB
     Indication: EGFR gene mutation
     Dates: start: 202012
  2. NINTEDANIB [Suspect]
     Active Substance: NINTEDANIB
     Indication: Non-small cell lung cancer
  3. DOCETAXEL [Concomitant]
     Active Substance: DOCETAXEL
     Indication: EGFR gene mutation
     Dates: start: 202012
  4. DOCETAXEL [Concomitant]
     Active Substance: DOCETAXEL
     Indication: Non-small cell lung cancer

REACTIONS (2)
  - Malignant neoplasm progression [Fatal]
  - Hepatotoxicity [Unknown]

NARRATIVE: CASE EVENT DATE: 20220401
